FAERS Safety Report 12288387 (Version 1)
Quarter: 2016Q2

REPORT INFORMATION
  Report Type: Spontaneous
  Country: US (occurrence: US)
  Receive Date: 20160420
  Receipt Date: 20160420
  Transmission Date: 20160815
  Serious: No
  Sender: FDA-Public Use
  Company Number: US-ASTELLAS-2016US009883

PATIENT
  Age: 46 Year
  Sex: Female
  Weight: 148 kg

DRUGS (2)
  1. TACROLIMUS OINTMENT [Suspect]
     Active Substance: TACROLIMUS
     Indication: ECZEMA
     Dosage: SMALL AMOUNT, TWICE DAILY
     Route: 061
     Dates: start: 20160309
  2. VICTOZA [Concomitant]
     Active Substance: LIRAGLUTIDE
     Indication: PRODUCT USED FOR UNKNOWN INDICATION
     Dosage: UNK UNK, UNKNOWN FREQ.
     Route: 065

REACTIONS (1)
  - Application site pain [Not Recovered/Not Resolved]

NARRATIVE: CASE EVENT DATE: 20160309
